FAERS Safety Report 4880396-7 (Version None)
Quarter: 2005Q4

REPORT INFORMATION
  Report Type: 
  Country: None (occurrence: None)
  Receive Date: 20051223
  Receipt Date: 20051011
  Transmission Date: 20060501
  Serious: No
  Sender: FDA-Public Use
  Company Number: 05P-163-0313334-00

PATIENT
  Age: 57 Year
  Sex: Female
  Weight: 63.5036 kg

DRUGS (1)
  1. HUMIRA [Suspect]
     Indication: RHEUMATOID ARTHRITIS
     Dosage: 40 MG, 1 IN 2 WK, SUBCUTANEOUS
     Route: 058
     Dates: start: 20040401, end: 20050923

REACTIONS (6)
  - BLOOD CHOLESTEROL INCREASED [None]
  - ERYTHEMA [None]
  - HEART RATE INCREASED [None]
  - HYPOAESTHESIA [None]
  - PARAESTHESIA [None]
  - VISUAL DISTURBANCE [None]
